FAERS Safety Report 5476701-3 (Version None)
Quarter: 2007Q4

REPORT INFORMATION
  Report Type: 
  Country: None (occurrence: None)
  Receive Date: 20071004
  Receipt Date: 20070628
  Transmission Date: 20080405
  Serious: No
  Sender: FDA-Public Use
  Company Number: A0660735A

PATIENT
  Age: 68 Year
  Sex: Female

DRUGS (4)
  1. ADVAIR DISKUS 100/50 [Suspect]
     Indication: ASTHMA
     Dosage: 2PUFF TWICE PER DAY
     Route: 055
     Dates: start: 20070201
  2. HORMONE [Concomitant]
  3. TRIAMTERENE [Concomitant]
  4. SINGULAIR [Concomitant]

REACTIONS (2)
  - EPISTAXIS [None]
  - INSOMNIA [None]
